FAERS Safety Report 17638911 (Version 1)
Quarter: 2020Q2

REPORT INFORMATION
  Report Type: Spontaneous
  Country: US (occurrence: US)
  Receive Date: 20200407
  Receipt Date: 20200407
  Transmission Date: 20200713
  Serious: Yes (Hospitalization, Other)
  Sender: FDA-Public Use
  Company Number: US-NAPPMUNDI-USA-2020-0151050

PATIENT
  Sex: Male

DRUGS (1)
  1. OXYCONTIN [Suspect]
     Active Substance: OXYCODONE HYDROCHLORIDE
     Indication: PAIN
     Dosage: UNK
     Route: 048
     Dates: start: 2005

REACTIONS (16)
  - Nephrolithiasis [Unknown]
  - Fall [Unknown]
  - Myocardial infarction [Unknown]
  - Faecal vomiting [Unknown]
  - Choking [Recovered/Resolved]
  - Drug dependence [Unknown]
  - Somnambulism [Unknown]
  - Mental impairment [Unknown]
  - Dysphagia [Unknown]
  - Vomiting [Recovered/Resolved]
  - Lethargy [Unknown]
  - Toxicity to various agents [Unknown]
  - Road traffic accident [Recovered/Resolved]
  - Drug withdrawal syndrome [Unknown]
  - General physical health deterioration [Unknown]
  - Muscle spasms [Unknown]
